FAERS Safety Report 25629131 (Version 6)
Quarter: 2025Q4

REPORT INFORMATION
  Report Type: Spontaneous
  Country: US (occurrence: US)
  Receive Date: 20250731
  Receipt Date: 20251030
  Transmission Date: 20260117
  Serious: Yes (Other)
  Sender: AMGEN
  Company Number: US-AMGEN-USASP2025146162

PATIENT

DRUGS (3)
  1. PAVBLU [Suspect]
     Active Substance: AFLIBERCEPT-AYYH
     Indication: Product used for unknown indication
     Dosage: 2 MILLIGRAM
     Route: 065
  2. PAVBLU [Suspect]
     Active Substance: AFLIBERCEPT-AYYH
     Dosage: UNK
     Route: 065
  3. PAVBLU [Suspect]
     Active Substance: AFLIBERCEPT-AYYH
     Dosage: UNK
     Route: 065

REACTIONS (1)
  - Device loosening [Unknown]

NARRATIVE: CASE EVENT DATE: 20250721
